FAERS Safety Report 5387407-3 (Version None)
Quarter: 2007Q3

REPORT INFORMATION
  Report Type: 
  Country: None (occurrence: None)
  Receive Date: 20070711
  Receipt Date: 20070711
  Transmission Date: 20080115
  Serious: No
  Sender: FDA-Public Use
  Company Number: None

PATIENT
  Sex: Female
  Weight: 72.7 kg

DRUGS (6)
  1. TEMOZOLOMIDE [Suspect]
     Dosage: 4160 MG
  2. ALTACE [Concomitant]
  3. DECADRON [Concomitant]
  4. INSULIN [Concomitant]
  5. KYTRIL [Concomitant]
  6. SYNTHROID [Concomitant]

REACTIONS (2)
  - ALANINE AMINOTRANSFERASE INCREASED [None]
  - PLATELET COUNT DECREASED [None]
